FAERS Safety Report 19170628 (Version 1)
Quarter: 2021Q2

REPORT INFORMATION
  Report Type: Spontaneous
  Country: US (occurrence: US)
  Receive Date: 20210422
  Receipt Date: 20210422
  Transmission Date: 20210717
  Serious: No
  Sender: FDA-Public Use
  Company Number: US-OTSUKA-2021_010960

PATIENT
  Age: 78 Year
  Sex: Male
  Weight: 95.25 kg

DRUGS (1)
  1. INQOVI [Suspect]
     Active Substance: CEDAZURIDINE\DECITABINE
     Indication: MYELODYSPLASTIC SYNDROME
     Dosage: 135MG (35 MG DECITABINE AND 100 MG CEDAZURIDINE), QD 1?5 DAYS EVERY 23 DAY CYCLE
     Route: 065
     Dates: start: 20210308

REACTIONS (11)
  - Night sweats [Recovered/Resolved]
  - Stomatitis [Unknown]
  - White blood cell count decreased [Unknown]
  - Oropharyngeal pain [Unknown]
  - Fatigue [Not Recovered/Not Resolved]
  - Oral candidiasis [Unknown]
  - Neutropenia [Unknown]
  - Thinking abnormal [Unknown]
  - Speech disorder [Unknown]
  - Asthenia [Unknown]
  - Cough [Unknown]

NARRATIVE: CASE EVENT DATE: 20210316
